FAERS Safety Report 19861488 (Version 1)
Quarter: 2021Q3

REPORT INFORMATION
  Report Type: Spontaneous
  Country: DE (occurrence: DE)
  Receive Date: 20210920
  Receipt Date: 20210920
  Transmission Date: 20211014
  Serious: Yes (Hospitalization, Other)
  Sender: FDA-Public Use
  Company Number: DE-PFIZER INC-202101156669

PATIENT
  Age: 56 Year
  Sex: Female
  Weight: 56 kg

DRUGS (3)
  1. KALIUMIODID [Concomitant]
     Active Substance: POTASSIUM IODIDE
     Dosage: 0.1 MG, 0.5?0?0?0, TABLET
     Route: 048
  2. PREDNISOLONE. [Concomitant]
     Active Substance: PREDNISOLONE
     Dosage: 1 MG, 2?0?0?0, TABLET
     Route: 048
  3. XELJANZ [Suspect]
     Active Substance: TOFACITINIB CITRATE
     Dosage: FREQ:12 H;5 MG, 1?0?1?0, TABLETTEN
     Route: 048

REACTIONS (5)
  - Nausea [Unknown]
  - Abdominal pain upper [Unknown]
  - Vomiting [Unknown]
  - Hepatic enzyme increased [Unknown]
  - Pancreatitis [Unknown]
